APPROVED DRUG PRODUCT: IBUPROFEN
Active Ingredient: IBUPROFEN
Strength: 600MG
Dosage Form/Route: TABLET;ORAL
Application: A070476 | Product #001
Applicant: MCNEIL CONSUMER PRODUCTS CO DIV MCNEILAB INC
Approved: Jun 16, 1986 | RLD: No | RS: No | Type: DISCN